FAERS Safety Report 22317851 (Version 1)
Quarter: 2023Q2

REPORT INFORMATION
  Report Type: Other
  Country: US (occurrence: None)
  Receive Date: 20230515
  Receipt Date: 20230515
  Transmission Date: 20230722
  Serious: Yes (Hospitalization, Other)
  Sender: FDA-Public Use
  Company Number: US-Inventia-000277

PATIENT
  Age: 33 Year
  Sex: Male

DRUGS (5)
  1. PALIPERIDONE [Suspect]
     Active Substance: PALIPERIDONE
     Indication: Acute psychosis
     Dosage: 234 MG EVERY 28 DAYS
  2. THORAZINE [Suspect]
     Active Substance: CHLORPROMAZINE
     Indication: Acute psychosis
     Dosage: 100 MG ORALLY 3 TIMES A DAY
     Route: 048
  3. DEPAKOTE ER [Suspect]
     Active Substance: DIVALPROEX SODIUM
     Indication: Acute psychosis
     Dosage: 500 MG ORALLY EVERY MORNING
     Route: 048
  4. TRAZODONE [Suspect]
     Active Substance: TRAZODONE HYDROCHLORIDE
     Indication: Acute psychosis
     Dosage: 50 MG ORALLY AT NIGHT
     Route: 048
  5. PALIPERIDONE [Suspect]
     Active Substance: PALIPERIDONE
     Indication: Acute psychosis

REACTIONS (2)
  - Pancreatitis acute [Recovering/Resolving]
  - Hypertriglyceridaemia [Recovering/Resolving]
